FAERS Safety Report 16136341 (Version 2)
Quarter: 2019Q2

REPORT INFORMATION
  Report Type: Spontaneous
  Country: US (occurrence: US)
  Receive Date: 20190329
  Receipt Date: 20190405
  Transmission Date: 20190711
  Serious: Yes (Other)
  Sender: FDA-Public Use
  Company Number: US-ASCEND THERAPEUTICS-2064949

PATIENT
  Age: 65 Year
  Sex: Female

DRUGS (3)
  1. LYRICA [Concomitant]
     Active Substance: PREGABALIN
  2. LYRICA [Concomitant]
     Active Substance: PREGABALIN
  3. ESTROGEL [Suspect]
     Active Substance: ESTRADIOL
     Indication: DEPRESSION
     Route: 062
     Dates: end: 20180930

REACTIONS (4)
  - Off label use [None]
  - Therapeutic response unexpected [None]
  - Weight increased [Unknown]
  - Breast cancer [Recovered/Resolved]
